FAERS Safety Report 18990608 (Version 1)
Quarter: 2021Q1

REPORT INFORMATION
  Report Type: Spontaneous
  Country: GB (occurrence: GB)
  Receive Date: 20210310
  Receipt Date: 20210310
  Transmission Date: 20210420
  Serious: Yes (Hospitalization, Other)
  Sender: FDA-Public Use
  Company Number: GB-LUPIN PHARMACEUTICALS INC.-2021-02735

PATIENT
  Age: 83 Year
  Sex: Male

DRUGS (12)
  1. PYRIDOSTIGMINE [Suspect]
     Active Substance: PYRIDOSTIGMINE
     Indication: MYASTHENIA GRAVIS
     Dosage: 120 MILLIGRAM, TID
     Route: 048
  2. PYRIDOSTIGMINE [Suspect]
     Active Substance: PYRIDOSTIGMINE
     Dosage: 90 MILLIGRAM, TAKEN THREE TIMES A DAY
     Route: 048
  3. PREDNISOLONE. [Concomitant]
     Active Substance: PREDNISOLONE
     Dosage: 40 MILLIGRAM, QD, DISPERSIBLE DOSAGE FORM
     Route: 048
  4. PREDNISOLONE. [Concomitant]
     Active Substance: PREDNISOLONE
     Dosage: UNK, DOSE TITRATED
     Route: 048
  5. NEOSTIGMINE. [Concomitant]
     Active Substance: NEOSTIGMINE METHYLSULFATE
     Indication: MYASTHENIA GRAVIS
     Dosage: UNK, BOLUS; OVER 24 HOURS
     Route: 058
  6. NEOSTIGMINE. [Concomitant]
     Active Substance: NEOSTIGMINE METHYLSULFATE
     Dosage: 4 MILLIGRAM,INFUSION; OVER 24 HOURS
     Route: 058
  7. PREDNISOLONE. [Concomitant]
     Active Substance: PREDNISOLONE
     Indication: MYASTHENIA GRAVIS
     Dosage: 40 MILLIGRAM, QD
     Route: 048
  8. PYRIDOSTIGMINE [Suspect]
     Active Substance: PYRIDOSTIGMINE
     Dosage: 120 MILLIGRAM, TAKEN THREE TIMES A DAY; TABLETS WERE CRUSHED AND DISPERSED IN WATER TO EASE ORAL ADM
     Route: 048
  9. MORPHINE [Suspect]
     Active Substance: MORPHINE
     Indication: MYASTHENIA GRAVIS
     Dosage: UNK
     Route: 065
  10. GABAPENTIN. [Concomitant]
     Active Substance: GABAPENTIN
     Indication: PAIN
     Dosage: UNK
     Route: 016
  11. DEXAMETHASONE. [Concomitant]
     Active Substance: DEXAMETHASONE
     Indication: MYASTHENIA GRAVIS
     Dosage: UNK
     Route: 058
  12. WATER FOR INJECTION [Concomitant]
     Active Substance: WATER
     Indication: VEHICLE SOLUTION USE
     Dosage: UNK, NEOSTIGMINE WAS DILUTED TO A TOTAL VOLUME OF 17 ML WITH WATER PRIOR TO ADMINISTRATION
     Route: 058

REACTIONS (4)
  - Confusional state [Recovering/Resolving]
  - Drug withdrawal syndrome [Recovering/Resolving]
  - Myasthenia gravis [Recovering/Resolving]
  - Product dose omission issue [Unknown]
